FAERS Safety Report 20539554 (Version 1)
Quarter: 2022Q1

REPORT INFORMATION
  Report Type: Spontaneous
  Country: CA (occurrence: CA)
  Receive Date: 20220302
  Receipt Date: 20220302
  Transmission Date: 20220423
  Serious: Yes (Hospitalization)
  Sender: FDA-Public Use
  Company Number: CA-JNJFOC-20211060073

PATIENT
  Age: 47 Year
  Sex: Female

DRUGS (3)
  1. INVEGA SUSTENNA [Suspect]
     Active Substance: PALIPERIDONE PALMITATE
     Indication: Bipolar disorder
     Route: 030
  2. INVEGA SUSTENNA [Suspect]
     Active Substance: PALIPERIDONE PALMITATE
  3. INVEGA SUSTENNA [Suspect]
     Active Substance: PALIPERIDONE PALMITATE

REACTIONS (12)
  - Aphasia [Unknown]
  - Decreased eye contact [Unknown]
  - Eyelid ptosis [Unknown]
  - Memory impairment [Unknown]
  - Slow speech [Unknown]
  - Constricted affect [Unknown]
  - Social avoidant behaviour [Unknown]
  - Staring [Unknown]
  - Thinking abnormal [Unknown]
  - Cognitive disorder [Unknown]
  - Product use in unapproved indication [Unknown]
  - Off label use [Unknown]
